FAERS Safety Report 23853423 (Version 1)
Quarter: 2024Q2

REPORT INFORMATION
  Report Type: Spontaneous
  Country: US (occurrence: US)
  Receive Date: 20240514
  Receipt Date: 20240514
  Transmission Date: 20240716
  Serious: No
  Sender: FDA-Public Use
  Company Number: US-PFIZER INC-202400107150

PATIENT
  Age: 76 Year
  Sex: Female
  Weight: 81.65 kg

DRUGS (3)
  1. TIKOSYN [Suspect]
     Active Substance: DOFETILIDE
  2. TAMBOCOR [Suspect]
     Active Substance: FLECAINIDE ACETATE
  3. BETAPACE [Suspect]
     Active Substance: SOTALOL HYDROCHLORIDE

REACTIONS (1)
  - Drug ineffective [Unknown]
